FAERS Safety Report 7087276-X (Version None)
Quarter: 2010Q4

REPORT INFORMATION
  Report Type: 
  Country: None (occurrence: None)
  Receive Date: 20101107
  Receipt Date: 20090630
  Transmission Date: 20110411
  Serious: Yes (Other)
  Sender: FDA-Public Use
  Company Number: PHHY2009US66808

PATIENT
  Sex: Female

DRUGS (2)
  1. EXJADE [Suspect]
     Dosage: 250 MG, QD
     Route: 048
  2. HUMAN GROWTH HORMONE [Concomitant]

REACTIONS (2)
  - BODY HEIGHT BELOW NORMAL [None]
  - GROWTH RETARDATION [None]
